FAERS Safety Report 25070857 (Version 1)
Quarter: 2025Q1

REPORT INFORMATION
  Report Type: Spontaneous
  Country: US (occurrence: US)
  Receive Date: 20250312
  Receipt Date: 20250312
  Transmission Date: 20250409
  Serious: No
  Sender: SANOFI AVENTIS
  Company Number: US-SANOFI-02441671

PATIENT
  Age: 72 Year
  Sex: Female

DRUGS (1)
  1. MULTAQ [Suspect]
     Active Substance: DRONEDARONE
     Indication: Atrial fibrillation
     Dosage: 400 MG, BID

REACTIONS (8)
  - Skin hypertrophy [Unknown]
  - Cutaneous contour deformity [Unknown]
  - Rhinophyma [Unknown]
  - Skin swelling [Unknown]
  - Fatigue [Unknown]
  - Bradycardia [Unknown]
  - Heart rate decreased [Unknown]
  - Asthenia [Unknown]
